FAERS Safety Report 7715885-0 (Version None)
Quarter: 2011Q3

REPORT INFORMATION
  Report Type: 
  Country: None (occurrence: None)
  Receive Date: 20110829
  Receipt Date: 20110829
  Transmission Date: 20111222
  Serious: Yes (Other)
  Sender: FDA-Public Use
  Company Number: None

PATIENT
  Age: 38 Year
  Sex: Female
  Weight: 113.39 kg

DRUGS (2)
  1. MEFENAMIC ACID [Suspect]
     Indication: DYSMENORRHOEA
     Dosage: 1 CAPSULE
     Route: 048
     Dates: start: 20110809, end: 20110810
  2. MEFENAMIC ACID [Suspect]
     Indication: ENDOMETRIOSIS
     Dosage: 1 CAPSULE
     Route: 048
     Dates: start: 20110809, end: 20110810

REACTIONS (2)
  - PRODUCT SUBSTITUTION ISSUE [None]
  - DIARRHOEA [None]
